FAERS Safety Report 10488995 (Version 2)
Quarter: 2015Q1

REPORT INFORMATION
  Report Type: Spontaneous
  Country: US (occurrence: None)
  Receive Date: 20140930
  Receipt Date: 20150218
  Transmission Date: 20150720
  Serious: Yes (Hospitalization)
  Sender: FDA-Public Use
  Company Number: 201409091

PATIENT
  Age: 63 Year
  Sex: Male

DRUGS (7)
  1. CYMBALTA [Concomitant]
     Active Substance: DULOXETINE HYDROCHLORIDE
  2. ZOLOFT [Concomitant]
     Active Substance: SERTRALINE HYDROCHLORIDE
  3. TRAZODONE [Concomitant]
     Active Substance: TRAZODONE HYDROCHLORIDE
  4. TESTIM [Suspect]
     Active Substance: TESTOSTERONE
     Indication: BLOOD TESTOSTERONE DECREASED
     Dosage: FILLED FIRST SCRIPT ON 5/22/2012 AND LAST SCRIPT ON 8/20/2012. DOSE ON SCRIPT WAS TO APPLY 2 TUBES DAILY, TRASDERMAL
     Route: 062
     Dates: start: 201205, end: 2012
  5. LORAZEPAM. [Concomitant]
     Active Substance: LORAZEPAM
  6. CHANTIX [Concomitant]
     Active Substance: VARENICLINE TARTRATE
  7. PROPRANOLOL [Concomitant]
     Active Substance: PROPRANOLOL\PROPRANOLOL HYDROCHLORIDE

REACTIONS (7)
  - Economic problem [None]
  - Atrial fibrillation [None]
  - Haemorrhagic stroke [None]
  - Emotional disorder [None]
  - Fall [None]
  - Pneumonia [None]
  - Quality of life decreased [None]

NARRATIVE: CASE EVENT DATE: 20120917
